APPROVED DRUG PRODUCT: CLONIDINE HYDROCHLORIDE
Active Ingredient: CLONIDINE HYDROCHLORIDE
Strength: 0.1MG
Dosage Form/Route: TABLET, EXTENDED RELEASE;ORAL
Application: A210680 | Product #001
Applicant: RUBICON RESEARCH LTD
Approved: Apr 30, 2018 | RLD: No | RS: No | Type: DISCN